FAERS Safety Report 8077547-2 (Version None)
Quarter: 2012Q1

REPORT INFORMATION
  Report Type: 
  Country: None (occurrence: None)
  Receive Date: 20120127
  Receipt Date: 20120126
  Transmission Date: 20120608
  Serious: No
  Sender: FDA-Public Use
  Company Number: US-BAYER-2012-008667

PATIENT
  Age: 46 Year
  Sex: Female

DRUGS (2)
  1. MIRENA [Suspect]
     Dosage: 20 ?G/D, CONT
     Route: 015
     Dates: start: 20111101
  2. MIRENA [Suspect]
     Dosage: 20 ?G/D, CONT
     Route: 015
     Dates: start: 20060101, end: 20111101

REACTIONS (5)
  - ABDOMINAL DISTENSION [None]
  - WEIGHT INCREASED [None]
  - OEDEMA PERIPHERAL [None]
  - MENOPAUSE [None]
  - HOT FLUSH [None]
